FAERS Safety Report 24227729 (Version 1)
Quarter: 2024Q3

REPORT INFORMATION
  Report Type: Spontaneous
  Country: US (occurrence: None)
  Receive Date: 20240819
  Receipt Date: 20240819
  Transmission Date: 20241017
  Serious: Yes (Hospitalization)
  Sender: Public
  Company Number: None

PATIENT
  Age: 51 Year
  Sex: Female

DRUGS (1)
  1. AUBAGIO [Suspect]
     Active Substance: TERIFLUNOMIDE

REACTIONS (2)
  - Blood pressure increased [None]
  - Dyspnoea [None]
